FAERS Safety Report 13668075 (Version 4)
Quarter: 2018Q3

REPORT INFORMATION
  Report Type: Spontaneous
  Country: US (occurrence: US)
  Receive Date: 20170620
  Receipt Date: 20180813
  Transmission Date: 20181010
  Serious: Yes (Other)
  Sender: FDA-Public Use
  Company Number: US-PFIZER INC-2017264413

PATIENT
  Age: 68 Year
  Sex: Female
  Weight: 59 kg

DRUGS (4)
  1. XELJANZ XR [Suspect]
     Active Substance: TOFACITINIB CITRATE
     Indication: RHEUMATOID ARTHRITIS
     Dosage: 11 MG, 1X/DAY
     Route: 048
  2. FORTEO [Suspect]
     Active Substance: TERIPARATIDE
     Indication: BONE DISORDER
     Dosage: 20 UG, 1X/DAY
     Dates: start: 201704
  3. XELJANZ XR [Suspect]
     Active Substance: TOFACITINIB CITRATE
     Dosage: 11 MG, DAILY (11MG 1 TABLET BY MOUTH)
     Route: 048
     Dates: start: 201703
  4. XELJANZ XR [Suspect]
     Active Substance: TOFACITINIB CITRATE
     Dosage: 11 MG, 1X/DAY
     Route: 048
     Dates: start: 201801, end: 2018

REACTIONS (14)
  - Erythema [Unknown]
  - Nausea [Unknown]
  - Dry skin [Unknown]
  - Burns second degree [Unknown]
  - Skin fissures [Unknown]
  - Condition aggravated [Unknown]
  - Visual impairment [Unknown]
  - Headache [Unknown]
  - Skin exfoliation [Recovering/Resolving]
  - Cataract [Unknown]
  - Haematotoxicity [Recovering/Resolving]
  - Arthropod bite [Recovered/Resolved]
  - Vomiting [Unknown]
  - Malaise [Unknown]

NARRATIVE: CASE EVENT DATE: 201705
